FAERS Safety Report 9607325 (Version 1)
Quarter: 2013Q4

REPORT INFORMATION
  Report Type: Spontaneous
  Country: US (occurrence: None)
  Receive Date: 20131007
  Receipt Date: 20131007
  Transmission Date: 20140711
  Serious: Yes (Disabling)
  Sender: FDA-Public Use
  Company Number: None

PATIENT
  Age: 60 Year
  Sex: Female
  Weight: 45.36 kg

DRUGS (5)
  1. LEVAQUIN [Suspect]
     Indication: ABDOMINAL PAIN
     Dosage: 1Q 8 HOURS
     Route: 048
     Dates: start: 20110712, end: 20110714
  2. ARMOUR THYROID 15MG [Concomitant]
  3. MULTI VITAMIN [Concomitant]
  4. CALCIUM [Concomitant]
  5. MAGNESIUM [Concomitant]

REACTIONS (3)
  - Anosmia [None]
  - Small intestinal obstruction [None]
  - Diarrhoea [None]
